FAERS Safety Report 7003169-8 (Version None)
Quarter: 2010Q3

REPORT INFORMATION
  Report Type: 
  Country: None (occurrence: None)
  Receive Date: 20100920
  Receipt Date: 20100524
  Transmission Date: 20110219
  Serious: No
  Sender: FDA-Public Use
  Company Number: US-ASTRAZENECA-2010SE24010

PATIENT
  Sex: Female
  Weight: 90.7 kg

DRUGS (7)
  1. SEROQUEL [Suspect]
     Indication: BIPOLAR DISORDER
     Route: 048
     Dates: start: 20060101, end: 20100101
  2. SEROQUEL [Suspect]
     Indication: MANIA
     Route: 048
     Dates: start: 20060101, end: 20100101
  3. SEROQUEL [Suspect]
     Route: 048
     Dates: start: 20100101
  4. SEROQUEL [Suspect]
     Route: 048
     Dates: start: 20100101
  5. LAMICTAL [Concomitant]
  6. EFFEXOR XR [Concomitant]
  7. NUVIGIL [Concomitant]

REACTIONS (4)
  - COELIAC DISEASE [None]
  - DERMATITIS BULLOUS [None]
  - HYPERTENSION [None]
  - WEIGHT INCREASED [None]
